FAERS Safety Report 4551503-0 (Version None)
Quarter: 2005Q1

REPORT INFORMATION
  Report Type: 
  Country: None (occurrence: None)
  Receive Date: 20050110
  Receipt Date: 20041210
  Transmission Date: 20050727
  Serious: Yes (Other)
  Sender: FDA-Public Use
  Company Number: 2003-12-0466

PATIENT
  Age: 69 Year
  Sex: Male
  Weight: 126.1 kg

DRUGS (7)
  1. DR. SCHOLL'S CORN REMOVERS DISC [Suspect]
     Indication: CORN REMOVAL
     Dosage: TOP-DERM
     Route: 061
  2. MESTINON [Concomitant]
  3. CELLCEPT [Concomitant]
  4. K-DUR 10 [Concomitant]
  5. ENALAPRIL MALEATE [Concomitant]
  6. PREDNISONE [Concomitant]
  7. FUROSEMIDE [Concomitant]

REACTIONS (21)
  - ABSCESS LIMB [None]
  - ALPHA HAEMOLYTIC STREPTOCOCCAL INFECTION [None]
  - APPLICATION SITE BLEEDING [None]
  - APPLICATION SITE DESQUAMATION [None]
  - BONE INFECTION [None]
  - CANDIDIASIS [None]
  - CELLULITIS [None]
  - DRUG HYPERSENSITIVITY [None]
  - ENTEROCOCCAL INFECTION [None]
  - EXCESSIVE GRANULATION TISSUE [None]
  - HAEMORRHAGE [None]
  - HYPERKERATOSIS [None]
  - IMMUNOSUPPRESSION [None]
  - IMPAIRED HEALING [None]
  - INFECTION [None]
  - ONYCHOMYCOSIS [None]
  - OSTEOMYELITIS [None]
  - PHARMACEUTICAL PRODUCT COMPLAINT [None]
  - PSEUDOMONAS INFECTION [None]
  - STAPHYLOCOCCAL ABSCESS [None]
  - ULCER [None]
